FAERS Safety Report 6197227-8 (Version None)
Quarter: 2009Q2

REPORT INFORMATION
  Report Type: 
  Country: None (occurrence: None)
  Receive Date: 20090521
  Receipt Date: 20071109
  Transmission Date: 20091009
  Serious: Yes (Hospitalization, Other)
  Sender: FDA-Public Use
  Company Number: US-ASTRAZENECA-2006UW22640

PATIENT
  Age: 15946 Day
  Sex: Male
  Weight: 64.4 kg

DRUGS (17)
  1. SEROQUEL [Suspect]
     Indication: SCHIZOPHRENIA
     Dosage: 100 MG - 1000MG DAILY
     Route: 048
     Dates: start: 20010505
  2. SEROQUEL [Suspect]
     Indication: DEPRESSION
     Dosage: 100 MG - 1000MG DAILY
     Route: 048
     Dates: start: 20010505
  3. SEROQUEL [Suspect]
     Indication: BIPOLAR DISORDER
     Dosage: 100 MG - 1000MG DAILY
     Route: 048
     Dates: start: 20010505
  4. SEROQUEL [Suspect]
     Route: 048
  5. SEROQUEL [Suspect]
     Route: 048
  6. SEROQUEL [Suspect]
     Route: 048
  7. ZYPREXA [Concomitant]
     Dosage: 2.5 MG - 20 MG DAILY
     Route: 065
  8. AMARYL [Concomitant]
     Indication: DIABETES MELLITUS
     Dosage: 1 MG - 2 MG  DAILY
     Route: 065
  9. TRAZODONE HCL [Concomitant]
     Indication: SLEEP DISORDER
     Dosage: 100 MG - 300 MG DAILY
     Route: 065
  10. VISTARIL [Concomitant]
     Indication: ANXIETY
     Dosage: 25 MG - 50 MG
     Route: 065
  11. EFFEXOR [Concomitant]
     Dosage: 7.5 MG - 150 MG  DAILY
     Route: 065
  12. COGENTIN [Concomitant]
     Route: 065
  13. ATIVAN [Concomitant]
     Route: 065
  14. RISPERDAL [Concomitant]
     Route: 065
  15. VIOXX [Concomitant]
     Route: 065
  16. PINDOLOL [Concomitant]
     Route: 065
  17. HALDOL [Concomitant]
     Dosage: 2 MG - 10 MG DAILY
     Route: 065

REACTIONS (8)
  - BACK PAIN [None]
  - DEPRESSION [None]
  - DIABETES MELLITUS [None]
  - PAIN [None]
  - PSYCHOTIC DISORDER [None]
  - SCHIZOPHRENIA, PARANOID TYPE [None]
  - SUBSTANCE ABUSE [None]
  - SUICIDAL IDEATION [None]
